FAERS Safety Report 8780645 (Version 4)
Quarter: 2014Q3

REPORT INFORMATION
  Report Type: Report from Study
  Country: US (occurrence: US)
  Receive Date: 20120913
  Receipt Date: 20140908
  Transmission Date: 20150326
  Serious: Yes (Death, Other)
  Sender: FDA-Public Use
  Company Number: US-ROCHE-1113271

PATIENT
  Sex: Male
  Weight: 81 kg

DRUGS (10)
  1. AVASTIN [Suspect]
     Active Substance: BEVACIZUMAB
     Indication: MALIGNANT RESPIRATORY TRACT NEOPLASM
     Route: 042
  2. TAXOTERE [Concomitant]
     Active Substance: DOCETAXEL
  3. GEMZAR [Concomitant]
     Active Substance: GEMCITABINE HYDROCHLORIDE
     Route: 065
     Dates: start: 20040811
  4. FLUOROURACIL. [Concomitant]
     Active Substance: FLUOROURACIL
  5. MITOMYCIN. [Concomitant]
     Active Substance: MITOMYCIN
  6. ZOMETA [Concomitant]
     Active Substance: ZOLEDRONIC ACID
  7. CARBOPLATIN. [Concomitant]
     Active Substance: CARBOPLATIN
     Route: 065
     Dates: start: 20040811
  8. AVASTIN [Suspect]
     Active Substance: BEVACIZUMAB
     Indication: NON-SMALL CELL LUNG CANCER
  9. TARCEVA [Suspect]
     Active Substance: ERLOTINIB HYDROCHLORIDE
     Indication: MALIGNANT RESPIRATORY TRACT NEOPLASM
     Route: 065
  10. TARCEVA [Suspect]
     Active Substance: ERLOTINIB HYDROCHLORIDE
     Indication: NON-SMALL CELL LUNG CANCER

REACTIONS (13)
  - Diarrhoea [Unknown]
  - Musculoskeletal pain [Unknown]
  - Onycholysis [Unknown]
  - Nausea [Unknown]
  - Neck pain [Unknown]
  - Arthralgia [Unknown]
  - Metastases to lung [Unknown]
  - Disease progression [Unknown]
  - Neuropathy peripheral [Unknown]
  - Off label use [Unknown]
  - Death [Fatal]
  - Vomiting [Unknown]
  - Metastases to bone [Unknown]
